FAERS Safety Report 9524246 (Version 1)
Quarter: 2013Q1

REPORT INFORMATION
  Report Type: Spontaneous
  Country: US (occurrence: None)
  Receive Date: 20130305
  Receipt Date: 20130305
  Transmission Date: 20140127
  Serious: Yes (Hospitalization)
  Sender: FDA-Public Use
  Company Number: 163-21880-12033551

PATIENT
  Age: 54 Year
  Sex: Male

DRUGS (1)
  1. REVLIMID (LENALIDOMIDE) (25 MILLIGRAM, CAPSULES) [Suspect]
     Indication: PLASMA CELL MYELOMA
     Dosage: 25 MG DAILY FOR 3 WEEKS, 1 WEEK OFF, PO?
     Route: 048
     Dates: start: 20120214, end: 20120312

REACTIONS (3)
  - Gout [None]
  - Local swelling [None]
  - Pain in extremity [None]
